FAERS Safety Report 4637562-5 (Version None)
Quarter: 2005Q2

REPORT INFORMATION
  Report Type: 
  Country: None (occurrence: None)
  Receive Date: 20050418
  Receipt Date: 20050401
  Transmission Date: 20051028
  Serious: Yes (Hospitalization)
  Sender: FDA-Public Use
  Company Number: PT-BOEHRINGER INGELHEIM PHARMACEUTICALS, INC.-2005-DE-01316PO

PATIENT
  Sex: Male
  Weight: 65 kg

DRUGS (3)
  1. VIRAMUNE [Suspect]
     Route: 048
     Dates: start: 20050215, end: 20050313
  2. LAMIVUDINE AND ZIDOVUDINE [Concomitant]
     Route: 048
     Dates: start: 20050215, end: 20050313
  3. ACETAMINOPHEN [Concomitant]
     Route: 048
     Dates: start: 20050310, end: 20050312

REACTIONS (9)
  - BLOOD BILIRUBIN INCREASED [None]
  - BLOOD CREATINE PHOSPHOKINASE INCREASED [None]
  - EXANTHEM [None]
  - HEPATITIS [None]
  - HYPERSENSITIVITY [None]
  - MYALGIA [None]
  - PYREXIA [None]
  - RHABDOMYOLYSIS [None]
  - TRANSAMINASES INCREASED [None]
